FAERS Safety Report 13264653 (Version 1)
Quarter: 2017Q1

REPORT INFORMATION
  Report Type: Spontaneous
  Country: US (occurrence: US)
  Receive Date: 20170223
  Receipt Date: 20170223
  Transmission Date: 20170428
  Serious: Yes (Hospitalization, Other)
  Sender: FDA-Public Use
  Company Number: US-ELI_LILLY_AND_COMPANY-US201702006812

PATIENT
  Age: 74 Year
  Sex: Female

DRUGS (4)
  1. HUMALOG [Suspect]
     Active Substance: INSULIN LISPRO
     Indication: TYPE 2 DIABETES MELLITUS
     Dosage: UNK UNK, PRN
     Route: 065
     Dates: start: 201607
  2. TRAMADOL. [Suspect]
     Active Substance: TRAMADOL
     Indication: PRODUCT USED FOR UNKNOWN INDICATION
     Dosage: UNK, UNKNOWN
     Route: 065
  3. MORPHINE [Suspect]
     Active Substance: MORPHINE
     Indication: PRODUCT USED FOR UNKNOWN INDICATION
     Dosage: UNK, UNKNOWN
     Route: 065
  4. TRESIBA [Concomitant]
     Active Substance: INSULIN DEGLUDEC

REACTIONS (10)
  - Gait disturbance [Unknown]
  - Drug hypersensitivity [Unknown]
  - Thinking abnormal [Unknown]
  - Feeding disorder [Unknown]
  - Visual impairment [Unknown]
  - Fall [Unknown]
  - Unresponsive to stimuli [Unknown]
  - Depressed level of consciousness [Unknown]
  - Amnesia [Unknown]
  - Emotional disorder [Unknown]

NARRATIVE: CASE EVENT DATE: 201608
